FAERS Safety Report 8588275 (Version 4)
Quarter: 2013Q4

REPORT INFORMATION
  Report Type: Spontaneous
  Country: GB (occurrence: None)
  Receive Date: 20120523
  Receipt Date: 20131011
  Transmission Date: 20140711
  Serious: Yes (Death, Hospitalization)
  Sender: FDA-Public Use
  Company Number: AUR-APL-2012-02182

PATIENT
  Age: 43 Year
  Sex: Male
  Weight: 68 kg

DRUGS (7)
  1. RIBAVIRIN [Suspect]
     Indication: HEPATITIS C
     Dosage: 1000 MG (1000 MG, 1 IN 1 D), ORAL
     Route: 048
     Dates: start: 20120418, end: 20120421
  2. PEGASYS [Suspect]
     Indication: HEPATITIS C
     Dosage: 180 MCG, SUBCUTANEOUS
     Route: 058
     Dates: start: 20120418, end: 20120421
  3. INCIVEK [Suspect]
     Indication: HEPATITIS C
     Dosage: 2250 MG (750 MG, 3 IN 1 D), ORAL
     Route: 048
     Dates: start: 20120418, end: 20120421
  4. BECONASE AQ [Concomitant]
  5. DIAZEPAM (DIAZEPAM) [Concomitant]
  6. OMEPRAZOLE(OMEPRAZOLE) [Concomitant]
  7. SALBUTAMOL(SALBUTAMOL) [Concomitant]

REACTIONS (4)
  - Cardiac arrest [None]
  - Brain injury [None]
  - Bronchopneumonia [None]
  - Aspiration [None]
